FAERS Safety Report 12917830 (Version 2)
Quarter: 2017Q2

REPORT INFORMATION
  Report Type: Spontaneous
  Country: US (occurrence: US)
  Receive Date: 20161107
  Receipt Date: 20170503
  Transmission Date: 20170830
  Serious: No
  Sender: FDA-Public Use
  Company Number: US-PFIZER INC-2016516274

PATIENT
  Age: 84 Year
  Sex: Male
  Weight: 53 kg

DRUGS (1)
  1. ADVIL [Suspect]
     Active Substance: IBUPROFEN
     Dosage: 200 MG, UNK
     Dates: start: 2016

REACTIONS (1)
  - Dyschezia [Unknown]

NARRATIVE: CASE EVENT DATE: 2016
